FAERS Safety Report 18925901 (Version 1)
Quarter: 2021Q1

REPORT INFORMATION
  Report Type: Spontaneous
  Country: US (occurrence: US)
  Receive Date: 20210222
  Receipt Date: 20210222
  Transmission Date: 20210420
  Serious: Yes (Other)
  Sender: FDA-Public Use
  Company Number: US-AUROBINDO-AUR-APL-2021-006625

PATIENT
  Sex: Female

DRUGS (7)
  1. FLUOXETINE [Suspect]
     Active Substance: FLUOXETINE HYDROCHLORIDE
     Indication: DYSKINESIA
     Dosage: 50 MILLIGRAM
     Route: 065
  2. TETRABENAZINE. [Suspect]
     Active Substance: TETRABENAZINE
     Indication: DYSKINESIA
     Dosage: 25 MILLIGRAM (INCREASED TBZ DOSE)
     Route: 065
     Dates: start: 2011
  3. QUETIAPINE. [Suspect]
     Active Substance: QUETIAPINE
     Indication: DYSKINESIA
     Dosage: 50 MILLIGRAM
     Route: 065
     Dates: start: 201101
  4. QUETIAPINE. [Suspect]
     Active Substance: QUETIAPINE
     Dosage: 200 MILLIGRAM
     Dates: start: 2011
  5. TETRABENAZINE. [Suspect]
     Active Substance: TETRABENAZINE
     Indication: TARDIVE DYSKINESIA
     Dosage: 12.5 MILLIGRAM, TWO TIMES A DAY
     Route: 065
     Dates: start: 201106, end: 2011
  6. TRAZODONE [Concomitant]
     Active Substance: TRAZODONE HYDROCHLORIDE
     Indication: DYSKINESIA
     Dosage: 100 MILLIGRAM NIGHTLY
     Route: 065
  7. TETRABENAZINE. [Suspect]
     Active Substance: TETRABENAZINE
     Dosage: 12.5 MILLIGRAM, 3 TIMES A DAY
     Dates: start: 2011

REACTIONS (6)
  - Parkinsonism [Recovering/Resolving]
  - Muscle rigidity [Recovering/Resolving]
  - Hip fracture [Unknown]
  - Bradykinesia [Recovering/Resolving]
  - Tardive dyskinesia [Recovering/Resolving]
  - Fall [Unknown]

NARRATIVE: CASE EVENT DATE: 2011
